FAERS Safety Report 22626668 (Version 2)
Quarter: 2023Q2

REPORT INFORMATION
  Report Type: Report from Study
  Country: US (occurrence: US)
  Receive Date: 20230621
  Receipt Date: 20230629
  Transmission Date: 20230721
  Serious: Yes (Hospitalization, Other)
  Sender: FDA-Public Use
  Company Number: US-ABBVIE-5298765

PATIENT
  Sex: Male

DRUGS (2)
  1. HUMIRA [Suspect]
     Active Substance: ADALIMUMAB
     Indication: Rheumatoid arthritis
     Dosage: LAST ADMIN: 2023
     Route: 058
     Dates: start: 20230418
  2. HUMIRA [Suspect]
     Active Substance: ADALIMUMAB
     Dosage: FIRST ADMIN: 2023
     Route: 058

REACTIONS (4)
  - Cardiac failure congestive [Recovering/Resolving]
  - Renal failure [Recovering/Resolving]
  - Arthralgia [Unknown]
  - Acute kidney injury [Recovering/Resolving]

NARRATIVE: CASE EVENT DATE: 20230101
